FAERS Safety Report 8453319-1 (Version None)
Quarter: 2012Q2

REPORT INFORMATION
  Report Type: 
  Country: None (occurrence: None)
  Receive Date: 20120620
  Receipt Date: 20120511
  Transmission Date: 20120825
  Serious: No
  Sender: FDA-Public Use
  Company Number: US-VERTEX PHARMACEUTICALS INC.-AE-2012-007040

PATIENT
  Sex: Male
  Weight: 87.622 kg

DRUGS (4)
  1. RIBAVIRIN [Concomitant]
     Indication: HEPATITIS C
     Dates: start: 20120202, end: 20120402
  2. PEGASYS [Concomitant]
     Indication: HEPATITIS C
     Dates: start: 20120202, end: 20120402
  3. INCIVEK [Suspect]
     Indication: HEPATITIS C
     Route: 048
     Dates: start: 20120202, end: 20120426
  4. PEGASYS [Concomitant]
     Dates: start: 20120416, end: 20120501

REACTIONS (9)
  - PLATELET COUNT DECREASED [None]
  - DECREASED APPETITE [None]
  - FATIGUE [None]
  - WHITE BLOOD CELL COUNT DECREASED [None]
  - HEPATITIS C RNA INCREASED [None]
  - ANAEMIA [None]
  - HAEMOGLOBIN DECREASED [None]
  - RASH [None]
  - ANORECTAL DISORDER [None]
